FAERS Safety Report 13941492 (Version 1)
Quarter: 2017Q3

REPORT INFORMATION
  Report Type: Spontaneous
  Country: US (occurrence: US)
  Receive Date: 20170906
  Receipt Date: 20170906
  Transmission Date: 20171127
  Serious: No
  Sender: FDA-Public Use
  Company Number: US-ASTRAZENECA-2017SE89087

PATIENT
  Age: 524 Month
  Sex: Female
  Weight: 73.5 kg

DRUGS (3)
  1. BYDUREON [Suspect]
     Active Substance: EXENATIDE
     Indication: TYPE 2 DIABETES MELLITUS
     Route: 058
     Dates: start: 201706
  2. LEVOTHYROXINE. [Concomitant]
     Active Substance: LEVOTHYROXINE
     Indication: HYPOTHYROIDISM
     Route: 048
     Dates: start: 2005
  3. LEVEMIR [Concomitant]
     Active Substance: INSULIN DETEMIR
     Indication: TYPE 2 DIABETES MELLITUS
     Dosage: 50.0IU UNKNOWN
     Route: 058
     Dates: end: 201706

REACTIONS (7)
  - Blood glucose decreased [Recovered/Resolved]
  - Product label issue [Unknown]
  - Injection site pain [Unknown]
  - Injection site mass [Not Recovered/Not Resolved]
  - Feeling abnormal [Unknown]
  - Weight decreased [Unknown]
  - Needle issue [Unknown]

NARRATIVE: CASE EVENT DATE: 201706
